FAERS Safety Report 7847349 (Version 2)
Quarter: 2012Q4

REPORT INFORMATION
  Report Type: Report from Study
  Country: IL (occurrence: IL)
  Receive Date: 20110309
  Receipt Date: 20121226
  Transmission Date: 20130627
  Serious: Yes (Hospitalization)
  Sender: FDA-Public Use
  Company Number: PHHO2009IL10102

PATIENT
  Age: 4 Year
  Sex: Male
  Weight: 17 kg

DRUGS (6)
  1. ACZ885 [Suspect]
     Indication: JUVENILE ARTHRITIS
     Dosage: UNK
     Route: 058
     Dates: start: 20090810
  2. PREDNISONE [Concomitant]
     Dosage: UNK
     Dates: start: 20090730
  3. MTX [Concomitant]
     Dosage: UNK
     Dates: start: 20081118, end: 20090813
  4. NAXYN [Concomitant]
     Dosage: UNK
     Dates: start: 200810, end: 20090813
  5. STEROIDS NOS [Concomitant]
  6. NSAID^S [Concomitant]

REACTIONS (1)
  - Varicella [Recovered/Resolved]
